FAERS Safety Report 13546024 (Version 1)
Quarter: 2020Q3

REPORT INFORMATION
  Report Type: Spontaneous
  Country: US (occurrence: US)
  Receive Date: 20170515
  Receipt Date: 20170515
  Transmission Date: 20201105
  Serious: Yes (Other)
  Sender: FDA-Public Use
  Company Number: US-WARNER CHILCOTT-2016-002062

PATIENT
  Age: 66 Year
  Sex: Female

DRUGS (3)
  1. IBANDRONIC ACID. [Suspect]
     Active Substance: IBANDRONIC ACID
     Indication: OSTEOPOROSIS
     Dosage: UNKNOWN
     Route: 065
     Dates: start: 1995
  2. FOSAMAX [Suspect]
     Active Substance: ALENDRONATE SODIUM
     Indication: OSTEOPOROSIS
     Dosage: UNKNOWN
     Route: 065
     Dates: start: 1995
  3. ACTONEL [Suspect]
     Active Substance: RISEDRONATE SODIUM
     Indication: OSTEOPOROSIS
     Dosage: UNKNOWN
     Route: 048

REACTIONS (9)
  - Dental implantation [Unknown]
  - Femur fracture [Unknown]
  - Endodontic procedure [Unknown]
  - Femur fracture [Unknown]
  - Anxiety [Unknown]
  - Emotional distress [Unknown]
  - Osteonecrosis of jaw [Unknown]
  - Depression [Unknown]
  - Wrist fracture [Unknown]

NARRATIVE: CASE EVENT DATE: 1999
